FAERS Safety Report 23698842 (Version 1)
Quarter: 2024Q2

REPORT INFORMATION
  Report Type: Spontaneous
  Country: US (occurrence: US)
  Receive Date: 20240402
  Receipt Date: 20240402
  Transmission Date: 20240715
  Serious: No
  Sender: FDA-Public Use
  Company Number: US-SA-SAC20240326000791

PATIENT
  Age: 19 Year
  Sex: Female

DRUGS (1)
  1. TZIELD [Suspect]
     Active Substance: TEPLIZUMAB-MZWV
     Indication: Diabetes prophylaxis
     Dosage: UNK
     Route: 041
     Dates: start: 20240318

REACTIONS (4)
  - Peripheral swelling [Recovering/Resolving]
  - Cough [Recovering/Resolving]
  - Swelling face [Recovering/Resolving]
  - Throat clearing [Recovering/Resolving]

NARRATIVE: CASE EVENT DATE: 20240323
